FAERS Safety Report 8947988 (Version 1)
Quarter: 2012Q4

REPORT INFORMATION
  Report Type: 
  Country: None (occurrence: US)
  Receive Date: 20121204
  Receipt Date: 20121204
  Transmission Date: 20130627
  Serious: Yes (Hospitalization, Other)
  Sender: FDA-Public Use
  Company Number: US-ABBOTT-12P-163-0973196-00

PATIENT
  Sex: Male
  Weight: 76.27 kg

DRUGS (2)
  1. NIASPAN (COATED) 500MG [Suspect]
     Indication: HIGH DENSITY LIPOPROTEIN DECREASED
     Dates: start: 2011
  2. CRESTOR [Concomitant]
     Indication: PRODUCT USED FOR UNKNOWN INDICATION

REACTIONS (8)
  - Head injury [Recovered/Resolved]
  - Visual impairment [Recovered/Resolved]
  - Detachment of macular retinal pigment epithelium [Recovered/Resolved]
  - Eye haemorrhage [Recovered/Resolved]
  - Night blindness [Recovered/Resolved]
  - Altered visual depth perception [Recovered/Resolved]
  - Visual acuity reduced [Recovered/Resolved]
  - Chorioretinopathy [Recovered/Resolved]
